FAERS Safety Report 21974784 (Version 1)
Quarter: 2023Q1

REPORT INFORMATION
  Report Type: Spontaneous
  Country: JP (occurrence: JP)
  Receive Date: 20230209
  Receipt Date: 20230209
  Transmission Date: 20230418
  Serious: Yes (Death, Other)
  Sender: FDA-Public Use
  Company Number: JP-JAZZ-2023-JP-003121

PATIENT
  Age: 46 Year
  Sex: Female
  Weight: 61.8 kg

DRUGS (1)
  1. DEFITELIO [Suspect]
     Active Substance: DEFIBROTIDE SODIUM
     Indication: Venoocclusive liver disease
     Dosage: 25 MILLIGRAM/KILOGRAM
     Route: 042
     Dates: start: 20220707, end: 20220726

REACTIONS (1)
  - Acute myeloid leukaemia [Fatal]
